FAERS Safety Report 7595386-3 (Version None)
Quarter: 2011Q3

REPORT INFORMATION
  Report Type: 
  Country: None (occurrence: None)
  Receive Date: 20110707
  Receipt Date: 20110628
  Transmission Date: 20111222
  Serious: Yes (Hospitalization)
  Sender: FDA-Public Use
  Company Number: JP-JNJFOC-20110602351

PATIENT
  Sex: Female
  Weight: 67 kg

DRUGS (15)
  1. GRAN [Concomitant]
     Dosage: 75MCG/0.3ML
     Route: 065
     Dates: start: 20091106, end: 20091107
  2. FUNGUARD [Concomitant]
     Indication: PNEUMOCYSTIS JIROVECI PNEUMONIA
     Dosage: 75MCG/0.3ML
     Route: 042
     Dates: start: 20100306, end: 20100310
  3. SULFAMETHOXAZOLE [Concomitant]
     Indication: PNEUMOCYSTIS JIROVECI PNEUMONIA
     Dosage: 75MCG/0.3ML
     Route: 048
     Dates: start: 20100306, end: 20100311
  4. DOXORUBICIN HCL [Suspect]
     Indication: OVARIAN CANCER RECURRENT
     Route: 042
     Dates: start: 20091022, end: 20091022
  5. DOXORUBICIN HCL [Suspect]
     Route: 042
     Dates: start: 20091119, end: 20091119
  6. MEROPENEM HYDRATE [Concomitant]
     Indication: PNEUMOCYSTIS JIROVECI PNEUMONIA
     Dosage: 75MCG/0.3ML
     Route: 042
     Dates: start: 20100305, end: 20100312
  7. IMMUNE GLOBULIN (HUMAN) [Concomitant]
     Indication: PNEUMOCYSTIS JIROVECI PNEUMONIA
     Dosage: 75MCG/0.3ML
     Route: 042
     Dates: start: 20100306, end: 20100308
  8. DOXORUBICIN HCL [Suspect]
     Route: 042
     Dates: start: 20100113, end: 20100113
  9. DOXORUBICIN HCL [Suspect]
     Route: 042
     Dates: start: 20100212, end: 20100212
  10. DOXORUBICIN HCL [Suspect]
     Route: 042
     Dates: start: 20090925, end: 20090925
  11. FLOMAX [Concomitant]
     Dosage: 75MCG/0.3ML
     Route: 048
     Dates: start: 20091106, end: 20091110
  12. DOXORUBICIN HCL [Suspect]
     Route: 042
     Dates: start: 20091217, end: 20091217
  13. DOXORUBICIN HCL [Suspect]
     Route: 042
     Dates: start: 20090820, end: 20090820
  14. HEPARIN [Concomitant]
     Indication: PALMAR-PLANTAR ERYTHRODYSAESTHESIA SYNDROME
     Dosage: 75MCG/0.3ML
     Route: 061
     Dates: start: 20091022, end: 20091023
  15. ELASPOL [Concomitant]
     Indication: PNEUMOCYSTIS JIROVECI PNEUMONIA
     Dosage: 75MCG/0.3ML
     Route: 042
     Dates: start: 20100306, end: 20100313

REACTIONS (2)
  - ACUTE RESPIRATORY DISTRESS SYNDROME [None]
  - PNEUMOCYSTIS JIROVECI PNEUMONIA [None]
